FAERS Safety Report 6966293-1 (Version None)
Quarter: 2010Q3

REPORT INFORMATION
  Report Type: 
  Country: None (occurrence: None)
  Receive Date: 20100903
  Receipt Date: 20100824
  Transmission Date: 20110219
  Serious: Yes (Hospitalization, Other)
  Sender: FDA-Public Use
  Company Number: PHHY2010DE17789

PATIENT
  Age: 87 Year
  Sex: Female

DRUGS (6)
  1. DIOVAN [Suspect]
     Indication: HYPERTENSION
     Dosage: HALF DOSAGE FORM ONCE DAILY
     Route: 048
     Dates: start: 20070101
  2. ESIDRIX [Suspect]
     Dosage: UNK
     Dates: start: 20080101
  3. MOGADAN [Concomitant]
     Indication: SLEEP DISORDER
  4. CONCOR [Concomitant]
     Dosage: 2.5 MG, UNK
  5. COTRIM [Concomitant]
     Indication: CYSTITIS
     Dosage: UNK
     Dates: start: 20091001, end: 20091001
  6. ISOSORBIDE DINITRATE [Concomitant]
     Dosage: UNK
     Dates: start: 20080101

REACTIONS (4)
  - ATONIC URINARY BLADDER [None]
  - CYSTITIS [None]
  - MICTURITION DISORDER [None]
  - URINARY RETENTION [None]
